FAERS Safety Report 13968877 (Version 1)
Quarter: 2017Q3

REPORT INFORMATION
  Report Type: Spontaneous
  Country: GB (occurrence: GB)
  Receive Date: 20170914
  Receipt Date: 20170914
  Transmission Date: 20171128
  Serious: Yes (Other)
  Sender: FDA-Public Use
  Company Number: GB-ASTRAZENECA-2017SE92523

PATIENT

DRUGS (5)
  1. BRILIQUE [Suspect]
     Active Substance: TICAGRELOR
     Dosage: TWO TIMES A DAY
     Route: 048
  2. ASPIRIN. [Concomitant]
     Active Substance: ASPIRIN
  3. ISODUR [Concomitant]
  4. RAMIPRIL. [Concomitant]
     Active Substance: RAMIPRIL
  5. RANITIDINE. [Concomitant]
     Active Substance: RANITIDINE
     Dosage: RANOXIN DOUBLED TO 750MGS TWICE DAILY
     Route: 048

REACTIONS (2)
  - Angina unstable [Unknown]
  - Hypotension [Unknown]
